FAERS Safety Report 14162037 (Version 1)
Quarter: 2017Q4

REPORT INFORMATION
  Report Type: Spontaneous
  Country: US (occurrence: US)
  Receive Date: 20171106
  Receipt Date: 20171106
  Transmission Date: 20180321
  Serious: No
  Sender: FDA-Public Use
  Company Number: US-EGALET US INC-US-2017EGA000685

PATIENT
  Age: 40 Year
  Sex: Female

DRUGS (1)
  1. ARYMO ER [Suspect]
     Active Substance: MORPHINE SULFATE
     Indication: PRODUCT USED FOR UNKNOWN INDICATION
     Dosage: 15 MG, UNK

REACTIONS (1)
  - Nausea [Unknown]
